FAERS Safety Report 5084343-7 (Version None)
Quarter: 2006Q3

REPORT INFORMATION
  Report Type: 
  Country: None (occurrence: None)
  Receive Date: 20060821
  Receipt Date: 20060814
  Transmission Date: 20061208
  Serious: Yes (Other)
  Sender: FDA-Public Use
  Company Number: PHNU2006DE02787

PATIENT
  Sex: Female

DRUGS (1)
  1. ZOMETA [Suspect]
     Indication: METASTASES TO BONE
     Dosage: 4 MG ONCE IN 4 WEEKS
     Dates: start: 20010101

REACTIONS (5)
  - BONE DEBRIDEMENT [None]
  - OSTEITIS [None]
  - SKIN GRAFT [None]
  - TOOTH EXTRACTION [None]
  - TOOTHACHE [None]
